FAERS Safety Report 5470940-3 (Version None)
Quarter: 2007Q3

REPORT INFORMATION
  Report Type: 
  Country: None (occurrence: None)
  Receive Date: 20070928
  Receipt Date: 20070919
  Transmission Date: 20080115
  Serious: Yes (Death, Hospitalization)
  Sender: FDA-Public Use
  Company Number: US-MERCK-0709USA04237

PATIENT
  Age: 30 Year
  Sex: Male

DRUGS (24)
  1. CASPOFUNGIN MSD [Suspect]
     Indication: FUNGAL INFECTION
     Route: 065
  2. CASPOFUNGIN MSD [Suspect]
     Route: 065
  3. CASPOFUNGIN MSD [Suspect]
     Route: 065
  4. CASPOFUNGIN MSD [Suspect]
     Route: 065
  5. CASPOFUNGIN MSD [Suspect]
     Route: 065
  6. CASPOFUNGIN MSD [Suspect]
     Route: 065
  7. CASPOFUNGIN MSD [Suspect]
     Route: 065
  8. CASPOFUNGIN MSD [Suspect]
     Route: 065
  9. FLUCONAZOLE [Concomitant]
     Indication: FUNGAL INFECTION
     Route: 048
  10. AMPHOTERICIN B [Concomitant]
     Route: 065
  11. AMPHOTERICIN B [Concomitant]
     Route: 065
  12. AMPHOTERICIN B [Concomitant]
     Route: 065
  13. VORICONAZOLE [Concomitant]
     Route: 042
  14. VORICONAZOLE [Concomitant]
     Route: 042
  15. VORICONAZOLE [Concomitant]
     Route: 042
  16. VORICONAZOLE [Concomitant]
     Route: 042
  17. VORICONAZOLE [Concomitant]
     Route: 042
  18. VORICONAZOLE [Concomitant]
     Route: 042
  19. VORICONAZOLE [Concomitant]
     Route: 042
  20. VORICONAZOLE [Concomitant]
     Route: 042
  21. VORICONAZOLE [Concomitant]
     Route: 042
  22. VORICONAZOLE [Concomitant]
     Route: 042
  23. VORICONAZOLE [Concomitant]
     Route: 042
  24. VORICONAZOLE [Concomitant]
     Route: 042

REACTIONS (2)
  - LYMPHOPROLIFERATIVE DISORDER [None]
  - MULTI-ORGAN FAILURE [None]
